FAERS Safety Report 5458125-8 (Version None)
Quarter: 2007Q3

REPORT INFORMATION
  Report Type: 
  Country: None (occurrence: None)
  Receive Date: 20070917
  Receipt Date: 20070831
  Transmission Date: 20080115
  Serious: Yes (Death)
  Sender: FDA-Public Use
  Company Number: 100#08#2007-03396

PATIENT
  Age: 5 Year
  Sex: Male

DRUGS (5)
  1. CARBOPLATIN [Suspect]
     Indication: CNS GERMINOMA
  2. IFOSFAMIDE (IFOSFAMIDE) (IFOSFAMIDE) [Suspect]
     Indication: CNS GERMINOMA
     Dosage: 72 000 MG/M2
  3. ETOPOSIDE [Suspect]
     Indication: CNS GERMINOMA
     Dosage: 4 000 MG/M2
  4. VINCRISTINE [Suspect]
     Indication: CNS GERMINOMA
  5. CYCLOPHOSPHAMIDE [Suspect]
     Indication: CNS GERMINOMA
     Dosage: 16 500 MG/M2

REACTIONS (1)
  - ACUTE MYELOID LEUKAEMIA [None]
